FAERS Safety Report 5750509-3 (Version None)
Quarter: 2008Q2

REPORT INFORMATION
  Report Type: 
  Country: None (occurrence: None)
  Receive Date: 20080523
  Receipt Date: 20080523
  Transmission Date: 20081010
  Serious: Yes (Other)
  Sender: FDA-Public Use
  Company Number: None

PATIENT
  Age: 64 Year
  Sex: Female
  Weight: 82.5547 kg

DRUGS (1)
  1. OXCARBAZEPINE [Suspect]
     Indication: TRIGEMINAL NEURALGIA
     Dosage: TWICE BID P.O.
     Route: 048
     Dates: start: 20071214

REACTIONS (5)
  - HEADACHE [None]
  - LETHARGY [None]
  - NAUSEA [None]
  - PHARMACEUTICAL PRODUCT COMPLAINT [None]
  - THERAPEUTIC RESPONSE UNEXPECTED WITH DRUG SUBSTITUTION [None]
